FAERS Safety Report 9064288 (Version 2)
Quarter: 2013Q1

REPORT INFORMATION
  Report Type: Spontaneous
  Country: GB (occurrence: GB)
  Receive Date: 20130214
  Receipt Date: 20130215
  Transmission Date: 20140127
  Serious: Yes (Other)
  Sender: FDA-Public Use
  Company Number: GB-009507513-1302GBR004490

PATIENT
  Age: 61 Year
  Sex: Female
  Weight: 63 kg

DRUGS (6)
  1. EMEND [Suspect]
     Indication: PROPHYLAXIS OF NAUSEA AND VOMITING
     Dosage: 125 MG, UNK
     Route: 048
     Dates: start: 20130123, end: 20130123
  2. ATENOLOL [Concomitant]
     Dosage: 100 MG, UNK
  3. CYCLOPHOSPHAMIDE [Concomitant]
     Indication: MALAISE
     Dosage: UNK
     Dates: start: 20130123
  4. EPIRUBICIN HYDROCHLORIDE [Concomitant]
     Indication: MALAISE
     Dosage: UNK
     Dates: start: 20130123
  5. FLUOROURACIL [Concomitant]
     Dosage: UNK
     Dates: start: 20130123
  6. RAMIPRIL [Concomitant]
     Dosage: 2.5 MG, UNK

REACTIONS (8)
  - Neck pain [Recovered/Resolved]
  - Pain in jaw [Recovered/Resolved]
  - Feeling abnormal [Recovered/Resolved]
  - Palpitations [Recovered/Resolved]
  - Musculoskeletal pain [Recovered/Resolved]
  - Headache [Recovered/Resolved]
  - Eructation [Recovered/Resolved]
  - Fatigue [Recovered/Resolved]
